FAERS Safety Report 8746785 (Version 4)
Quarter: 2016Q2

REPORT INFORMATION
  Report Type: Spontaneous
  Country: US (occurrence: US)
  Receive Date: 20120827
  Receipt Date: 20160408
  Transmission Date: 20160815
  Serious: Yes (Other)
  Sender: FDA-Public Use
  Company Number: US-ASTRAZENECA-2012SE57957

PATIENT
  Age: 53 Year
  Sex: Female
  Weight: 92.5 kg

DRUGS (91)
  1. MECLOZINE HYDROCHLORIDE [Suspect]
     Active Substance: MECLOZINE DIHYDROCHLORIDE
     Route: 048
  2. ASA [Concomitant]
     Active Substance: ASPIRIN
  3. MAGNESIUM OXIDE. [Concomitant]
     Active Substance: MAGNESIUM OXIDE
     Dosage: 4 TABLETS PER DAY, 2 IN AM AND 2 IN PM
  4. NAFTIN [Concomitant]
     Active Substance: NAFTIFINE HYDROCHLORIDE
     Dosage: 1 % CREAM TO BOTH FEET BID
  5. FIORICET [Concomitant]
     Active Substance: ACETAMINOPHEN\BUTALBITAL\CAFFEINE
  6. TOPAMAX [Concomitant]
     Active Substance: TOPIRAMATE
     Dosage: 2 TABS BY MOUTH AT BEDTIME
     Route: 048
     Dates: start: 20151221
  7. CENTRUM SILVER [Concomitant]
     Active Substance: MINERALS\VITAMINS
     Route: 048
  8. VITAMIN B COMPLEX [Concomitant]
     Active Substance: CYANOCOBALAMIN\DEXPANTHENOL\NIACINAMIDE\PYRIDOXINE HYDROCHLORIDE\RIBOFLAVIN 5^-PHOSPHATE SODIUM\THIAMINE HYDROCHLORIDE\VITAMIN B COMPLEX
     Dosage: DAILY
     Route: 048
  9. CAMBIA [Concomitant]
     Active Substance: DICLOFENAC POTASSIUM
  10. ZOMIG [Suspect]
     Active Substance: ZOLMITRIPTAN
     Route: 048
  11. COLESTID [Suspect]
     Active Substance: COLESTIPOL HYDROCHLORIDE
     Route: 048
  12. PREMARIN VAGINAL [Suspect]
     Active Substance: ESTROGENS, CONJUGATED
     Dosage: 0.625 MG/GRAM VAGINALLY EVERY SUNDAY AND 45 G WEDNESDAY
     Route: 067
  13. NEURONTIN [Suspect]
     Active Substance: GABAPENTIN
     Route: 065
  14. LYRICA [Suspect]
     Active Substance: PREGABALIN
     Route: 048
     Dates: start: 20121221
  15. NOVOLOG [Concomitant]
     Active Substance: INSULIN ASPART
     Dosage: 70/30 15 UG, A5 MINUTES BEFORE BREAKFAST
  16. PRILOCAINE [Concomitant]
     Active Substance: PRILOCAINE
     Dosage: APPLY TO AFFECTED BACK AD HIP AREAS Q 12 HRS
  17. ROBAXIN [Concomitant]
     Active Substance: METHOCARBAMOL
  18. NAMENDA XR [Concomitant]
     Active Substance: MEMANTINE HYDROCHLORIDE
     Route: 048
     Dates: start: 20151221
  19. NEXIUM [Suspect]
     Active Substance: ESOMEPRAZOLE MAGNESIUM
     Route: 048
  20. LYRICA [Suspect]
     Active Substance: PREGABALIN
     Route: 048
  21. LYRICA [Suspect]
     Active Substance: PREGABALIN
     Route: 048
     Dates: start: 20151221
  22. TIZANIDINE. [Concomitant]
     Active Substance: TIZANIDINE
  23. ZONISAMIDE. [Concomitant]
     Active Substance: ZONISAMIDE
  24. BOTOX [Concomitant]
     Active Substance: ONABOTULINUMTOXINA
  25. KEPPRA [Concomitant]
     Active Substance: LEVETIRACETAM
  26. ZOFRAN [Concomitant]
     Active Substance: ONDANSETRON HYDROCHLORIDE
     Indication: NAUSEA
     Route: 048
     Dates: start: 20151221
  27. KEFLEX [Concomitant]
     Active Substance: CEPHALEXIN
     Route: 048
  28. FISH OIL [Concomitant]
     Active Substance: FISH OIL
     Dosage: 340-1 ,000 MG DAILY
     Route: 048
  29. RISPERDAL [Concomitant]
     Active Substance: RISPERIDONE
     Route: 048
  30. ULTRAM [Concomitant]
     Active Substance: TRAMADOL HYDROCHLORIDE
     Dosage: DESYREL 175 MG AT NIGHT
     Route: 048
  31. MELATONIN [Concomitant]
     Active Substance: MELATONIN
     Route: 048
  32. MAXALT [Concomitant]
     Active Substance: RIZATRIPTAN BENZOATE
  33. ELAVIL [Suspect]
     Active Substance: AMITRIPTYLINE HYDROCHLORIDE
     Route: 065
  34. VITAMIN D [Concomitant]
     Active Substance: CHOLECALCIFEROL
  35. MAGNESIUM OXIDE. [Concomitant]
     Active Substance: MAGNESIUM OXIDE
  36. OXYCODONE [Concomitant]
     Active Substance: OXYCODONE
     Indication: PAIN
  37. ALBUTEROL. [Concomitant]
     Active Substance: ALBUTEROL
     Indication: WHEEZING
     Dosage: 90 MCG, 2 PUFFS
  38. LIDOCAINE. [Concomitant]
     Active Substance: LIDOCAINE
     Dosage: APPLY TO AFFECTED BACK AD HIP AREAS Q 12 HRS
  39. PROAIR HFA [Concomitant]
     Active Substance: ALBUTEROL SULFATE
  40. VERAPAMIL [Concomitant]
     Active Substance: VERAPAMIL HYDROCHLORIDE
  41. TORADOL [Concomitant]
     Active Substance: KETOROLAC TROMETHAMINE
     Route: 030
  42. CARDIZEM [Concomitant]
     Active Substance: DILTIAZEM HYDROCHLORIDE
     Indication: OESOPHAGEAL SPASM
  43. PARAFON [Concomitant]
  44. ASPIRIN. [Concomitant]
     Active Substance: ASPIRIN
     Route: 048
     Dates: start: 20090712
  45. LANTUS SOLOSTAR [Concomitant]
     Active Substance: INSULIN GLARGINE
     Dosage: 100 UNIT/ML (3 ML) AT NIGHT PEN
     Route: 058
  46. ATIVAN [Concomitant]
     Active Substance: LORAZEPAM
     Route: 048
  47. MAG-OX [Concomitant]
     Active Substance: MAGNESIUM OXIDE
     Route: 048
  48. ZANAFLEX [Concomitant]
     Active Substance: TIZANIDINE HYDROCHLORIDE
     Route: 048
  49. NAMENDA [Concomitant]
     Active Substance: MEMANTINE HYDROCHLORIDE
  50. LIPITOR [Concomitant]
     Active Substance: ATORVASTATIN CALCIUM
  51. CALAN [Concomitant]
     Active Substance: VERAPAMIL HYDROCHLORIDE
  52. ANALPRAM [Concomitant]
     Dosage: 2.5 % TO 1 % APPLY TO AFFECTED AREA TWICE AS NEEDED.
     Route: 054
  53. CYCLOBENZAPRINE [Concomitant]
     Active Substance: CYCLOBENZAPRINE
  54. ONDANSETRON [Concomitant]
     Active Substance: ONDANSETRON
     Indication: NAUSEA
     Route: 048
  55. TOPIRAMATE. [Concomitant]
     Active Substance: TOPIRAMATE
     Dosage: HAS BEEN RESTARTED BY CHI. INCREASE TO 300 QHS.
  56. IMIPRAMINE [Concomitant]
     Active Substance: IMIPRAMINE
  57. PROVENTIL [Concomitant]
     Active Substance: ALBUTEROL
     Dosage: 2.5 MG/0.5 MG (0.5) EVERY 4 HOURS AS NEEDED
     Route: 055
  58. VITAMIN D3 [Concomitant]
     Active Substance: CHOLECALCIFEROL
     Route: 048
  59. RESTASIS [Concomitant]
     Active Substance: CYCLOSPORINE
     Dosage: APPLY TO EYE AS NEEDED .
     Route: 047
  60. PRAVACHOL [Concomitant]
     Active Substance: PRAVASTATIN SODIUM
     Route: 048
  61. COMPAZINE [Concomitant]
     Active Substance: PROCHLORPERAZINE MALEATE
  62. NABUMETONE. [Concomitant]
     Active Substance: NABUMETONE
     Indication: ARTHRALGIA
     Dosage: 2 DAYS PER WEEK
  63. RELAFEN [Concomitant]
     Active Substance: NABUMETONE
     Indication: HEADACHE
     Route: 048
     Dates: start: 20151221
  64. BACLOFEN. [Concomitant]
     Active Substance: BACLOFEN
     Indication: HYPOTENSION
  65. DESOWEN [Concomitant]
     Active Substance: DESONIDE
     Route: 061
  66. FLEXERIL [Concomitant]
     Active Substance: CYCLOBENZAPRINE HYDROCHLORIDE
  67. HCTZ [Concomitant]
     Active Substance: HYDROCHLOROTHIAZIDE
  68. PROTONIX [Concomitant]
     Active Substance: PANTOPRAZOLE SODIUM
  69. VISTARIL [Concomitant]
     Active Substance: HYDROXYZINE PAMOATE
     Indication: ANXIETY
  70. LACTULOSE. [Concomitant]
     Active Substance: LACTULOSE
  71. AMBIEN [Concomitant]
     Active Substance: ZOLPIDEM TARTRATE
     Indication: SLEEP DISORDER
  72. ATARAX [Concomitant]
     Active Substance: HYDROXYZINE\HYDROXYZINE HYDROCHLORIDE
  73. BETAMETHASONE DIPROPIONATE. [Concomitant]
     Active Substance: BETAMETHASONE DIPROPIONATE
     Route: 061
  74. FERROUS SULFATE. [Concomitant]
     Active Substance: FERROUS SULFATE
     Route: 048
     Dates: start: 20110711
  75. DILAUDID [Concomitant]
     Active Substance: HYDROMORPHONE HYDROCHLORIDE
     Indication: PAIN
     Dosage: 2 MG TAKE 1-2 TABS BY MOUTH
     Route: 048
  76. COMBIVENT [Concomitant]
     Active Substance: ALBUTEROL SULFATE\IPRATROPIUM BROMIDE
     Indication: WHEEZING
     Dosage: 18-103 MEG/ACTUATION  TAKE 2 PUFFS BY INHALATION EVERY 6 HOURS AS NEEDED
     Route: 055
  77. DESYREL [Concomitant]
     Active Substance: TRAZODONE HYDROCHLORIDE
     Route: 048
  78. LISINOPRIL. [Suspect]
     Active Substance: LISINOPRIL
     Route: 048
  79. RELPAX [Suspect]
     Active Substance: ELETRIPTAN HYDROBROMIDE
     Route: 065
  80. IMITREX [Suspect]
     Active Substance: SUMATRIPTAN SUCCINATE
     Route: 065
  81. METFORMIN [Concomitant]
     Active Substance: METFORMIN HYDROCHLORIDE
  82. REMERON [Concomitant]
     Active Substance: MIRTAZAPINE
  83. FIROCET [Concomitant]
     Dosage: 1-2 AT ONSET, AY REPEAT IN 4-6 HOURS, NOT TO EXCEED 4/DAY, 8 PER WEEK
  84. EMLA [Concomitant]
     Active Substance: LIDOCAINE\PRILOCAINE
     Indication: HEADACHE
     Dosage: 2.5-2.5% AS REQUIRED
     Route: 061
     Dates: start: 20151221
  85. TIZANIDINE. [Concomitant]
     Active Substance: TIZANIDINE
     Indication: HEADACHE
  86. DEPAKOTE [Concomitant]
     Active Substance: DIVALPROEX SODIUM
  87. AMITRIPTYLINE [Concomitant]
     Active Substance: AMITRIPTYLINE
  88. ANALPRAM HC [Concomitant]
     Active Substance: HYDROCORTISONE ACETATE\PRAMOXINE HYDROCHLORIDE
     Route: 054
  89. PATADAY [Concomitant]
     Active Substance: OLOPATADINE HYDROCHLORIDE
     Route: 047
  90. ULTRAM [Concomitant]
     Active Substance: TRAMADOL HYDROCHLORIDE
     Route: 048
  91. CYCLOSPORINE. [Concomitant]
     Active Substance: CYCLOSPORINE

REACTIONS (43)
  - Ataxia [Unknown]
  - Sleep apnoea syndrome [Unknown]
  - Back pain [Unknown]
  - Major depression [Unknown]
  - Anaemia [Unknown]
  - Memory impairment [Unknown]
  - Hypotension [Unknown]
  - Obesity [Unknown]
  - Post-traumatic stress disorder [Unknown]
  - Fibromyalgia [Unknown]
  - Activities of daily living impaired [Unknown]
  - Gastrooesophageal reflux disease [Unknown]
  - Hypersomnia [Unknown]
  - Hypertension [Unknown]
  - Chronic obstructive pulmonary disease [Unknown]
  - Endometriosis [Unknown]
  - Asthma [Unknown]
  - Oesophageal spasm [Unknown]
  - Diabetic neuropathy [Unknown]
  - Nausea [Unknown]
  - Vomiting [Unknown]
  - Hypomagnesaemia [Unknown]
  - Renal artery stenosis [Unknown]
  - Gastrooesophageal reflux disease [Unknown]
  - Migraine [Unknown]
  - Gait disturbance [Unknown]
  - Chronic kidney disease [Unknown]
  - Dumping syndrome [Unknown]
  - Hyperlipidaemia [Unknown]
  - Obstructive airways disorder [Unknown]
  - Weight increased [Unknown]
  - Ankle fracture [Unknown]
  - Intervertebral disc protrusion [Unknown]
  - Arthritis [Unknown]
  - Arthralgia [Unknown]
  - Borderline personality disorder [Unknown]
  - Headache [Unknown]
  - Supraventricular tachycardia [Unknown]
  - Type 2 diabetes mellitus [Unknown]
  - Pulmonary hypertension [Unknown]
  - Temporomandibular joint syndrome [Unknown]
  - Osteomyelitis [Unknown]
  - Limb discomfort [Unknown]

NARRATIVE: CASE EVENT DATE: 1994
